FAERS Safety Report 13054236 (Version 2)
Quarter: 2018Q4

REPORT INFORMATION
  Report Type: Spontaneous
  Country: US (occurrence: US)
  Receive Date: 20161222
  Receipt Date: 20181016
  Transmission Date: 20190204
  Serious: Yes (Other)
  Sender: FDA-Public Use
  Company Number: US-ELI_LILLY_AND_COMPANY-US201612006371

PATIENT
  Sex: Male

DRUGS (2)
  1. CIALIS [Suspect]
     Active Substance: TADALAFIL
     Indication: ERECTILE DYSFUNCTION
     Dosage: 1 DF, UNKNOWN
     Route: 065
     Dates: end: 201409
  2. VIAGRA [Suspect]
     Active Substance: SILDENAFIL CITRATE
     Indication: ERECTILE DYSFUNCTION
     Dosage: 1 DF, UNKNOWN
     Route: 065
     Dates: end: 201312

REACTIONS (3)
  - Malignant melanoma [Unknown]
  - Injury [Unknown]
  - Emotional disorder [Unknown]

NARRATIVE: CASE EVENT DATE: 2014
